FAERS Safety Report 18506078 (Version 1)
Quarter: 2020Q4

REPORT INFORMATION
  Report Type: Spontaneous
  Country: US (occurrence: US)
  Receive Date: 20201116
  Receipt Date: 20201116
  Transmission Date: 20210114
  Serious: Yes (Other)
  Sender: FDA-Public Use
  Company Number: US-NOVOPROD-766318

PATIENT
  Sex: Female

DRUGS (1)
  1. RYBELSUS [Suspect]
     Active Substance: SEMAGLUTIDE
     Indication: PRODUCT USED FOR UNKNOWN INDICATION
     Dosage: 3 MG FOR 10 DAYS
     Route: 048

REACTIONS (3)
  - Insomnia [Recovered/Resolved]
  - Palpitations [Recovered/Resolved]
  - Electrocardiogram QT prolonged [Recovered/Resolved]
